FAERS Safety Report 16713812 (Version 4)
Quarter: 2019Q3

REPORT INFORMATION
  Report Type: Report from Study
  Country: None (occurrence: US)
  Receive Date: 20190819
  Receipt Date: 20190925
  Transmission Date: 20191004
  Serious: Yes (Other)
  Sender: FDA-Public Use
  Company Number: US-ABBVIE-19K-163-2882481-00

PATIENT
  Sex: Male

DRUGS (3)
  1. FUROSEMIDE. [Concomitant]
     Active Substance: FUROSEMIDE
     Indication: PRODUCT USED FOR UNKNOWN INDICATION
     Dates: start: 2019
  2. VENCLEXTA [Suspect]
     Active Substance: VENETOCLAX
     Indication: CHRONIC LYMPHOCYTIC LEUKAEMIA
     Route: 048
     Dates: start: 20190731, end: 20190909
  3. VENCLEXTA [Suspect]
     Active Substance: VENETOCLAX
     Route: 048

REACTIONS (9)
  - Blood count abnormal [Unknown]
  - Transfusion [Unknown]
  - Peripheral swelling [Unknown]
  - Joint swelling [Unknown]
  - Pneumonia [Unknown]
  - Decreased appetite [Unknown]
  - Asthenia [Unknown]
  - Gastrointestinal pain [Unknown]
  - Constipation [Unknown]

NARRATIVE: CASE EVENT DATE: 2019
